FAERS Safety Report 12717326 (Version 1)
Quarter: 2016Q3

REPORT INFORMATION
  Report Type: Report from Study
  Country: PH (occurrence: PH)
  Receive Date: 20160906
  Receipt Date: 20160906
  Transmission Date: 20161109
  Serious: Yes (Other)
  Sender: FDA-Public Use
  Company Number: PH-BEH-2015053085

PATIENT
  Age: 11 Year
  Sex: Male
  Weight: 30 kg

DRUGS (39)
  1. IDELVION [Suspect]
     Active Substance: COAGULATION FACTOR IX RECOMBINANT HUMAN
     Dosage: 1468 UNK, UNK
     Route: 042
     Dates: start: 20150515
  2. IDELVION [Suspect]
     Active Substance: COAGULATION FACTOR IX RECOMBINANT HUMAN
     Dosage: 3300 IU, UNK
     Route: 042
     Dates: start: 20160430
  3. IDELVION [Suspect]
     Active Substance: COAGULATION FACTOR IX RECOMBINANT HUMAN
     Dosage: 3060 IU, UNK
     Route: 042
     Dates: start: 20160709
  4. IDELVION [Suspect]
     Active Substance: COAGULATION FACTOR IX RECOMBINANT HUMAN
     Indication: PROPHYLAXIS
     Dosage: TOTAL VOLUME: 51.8 ML [DIFFICULT TO READ]
     Route: 042
     Dates: start: 20150731
  5. IDELVION [Suspect]
     Active Substance: COAGULATION FACTOR IX RECOMBINANT HUMAN
     Dosage: 1511 UNK, UNK
     Route: 042
     Dates: start: 20150626
  6. IDELVION [Suspect]
     Active Substance: COAGULATION FACTOR IX RECOMBINANT HUMAN
     Dosage: 2893 UNK, UNK
     Route: 042
     Dates: start: 20150731
  7. IDELVION [Suspect]
     Active Substance: COAGULATION FACTOR IX RECOMBINANT HUMAN
     Dosage: 2873 UNK, UNK
     Route: 042
     Dates: start: 20150818
  8. CETIRIZINE 5 MG/ML [Concomitant]
     Indication: PREMEDICATION
  9. MULTIVITAMINS PLUS IRON SYRUP [Concomitant]
     Dosage: ONGOING: YES
     Route: 048
     Dates: start: 20150617
  10. IDELVION [Suspect]
     Active Substance: COAGULATION FACTOR IX RECOMBINANT HUMAN
     Dosage: 1468 UNK, UNK
     Route: 042
     Dates: start: 20150508
  11. IDELVION [Suspect]
     Active Substance: COAGULATION FACTOR IX RECOMBINANT HUMAN
     Dosage: 1511 UNK, UNK
     Route: 042
     Dates: start: 20150522
  12. IDELVION [Suspect]
     Active Substance: COAGULATION FACTOR IX RECOMBINANT HUMAN
     Dosage: 1511 UNK, UNK
     Route: 042
     Dates: start: 20150612
  13. IDELVION [Suspect]
     Active Substance: COAGULATION FACTOR IX RECOMBINANT HUMAN
     Dosage: 3023 UNK, UNK
     Route: 042
     Dates: start: 20151005
  14. IDELVION [Suspect]
     Active Substance: COAGULATION FACTOR IX RECOMBINANT HUMAN
     Dosage: 3300 UNK, UNK
     Route: 042
     Dates: start: 20160323
  15. IDELVION [Suspect]
     Active Substance: COAGULATION FACTOR IX RECOMBINANT HUMAN
     Dosage: 3300 UNK, UNK
     Route: 042
     Dates: start: 20160406
  16. IDELVION [Suspect]
     Active Substance: COAGULATION FACTOR IX RECOMBINANT HUMAN
     Indication: FACTOR IX DEFICIENCY
     Dosage: 7-DAY REGIMEN PROPHYLACTIC DOSING WITH 50 IU/KG
     Route: 042
     Dates: start: 20150424
  17. IDELVION [Suspect]
     Active Substance: COAGULATION FACTOR IX RECOMBINANT HUMAN
     Dosage: 3300 UNK, UNK
     Route: 042
     Dates: start: 20160413
  18. IDELVION [Suspect]
     Active Substance: COAGULATION FACTOR IX RECOMBINANT HUMAN
     Dosage: 3300 IU, UNK
     Route: 042
     Dates: start: 20160420
  19. IDELVION [Suspect]
     Active Substance: COAGULATION FACTOR IX RECOMBINANT HUMAN
     Dosage: 3300 IU, UNK
     Route: 042
     Dates: start: 20160427
  20. MULTIVITAMINS PLUS IRON SYRUP [Concomitant]
     Indication: NUTRITIONAL SUPPLEMENTATION
     Route: 048
     Dates: start: 20150529, end: 20150616
  21. IDELVION [Suspect]
     Active Substance: COAGULATION FACTOR IX RECOMBINANT HUMAN
     Dosage: 1511 UNK, UNK
     Route: 042
     Dates: start: 20150529
  22. IDELVION [Suspect]
     Active Substance: COAGULATION FACTOR IX RECOMBINANT HUMAN
     Dosage: 1511 UNK, UNK
     Route: 042
     Dates: start: 20150703
  23. IDELVION [Suspect]
     Active Substance: COAGULATION FACTOR IX RECOMBINANT HUMAN
     Dosage: 1511 UNK, UNK
     Route: 042
     Dates: start: 20150710
  24. IDELVION [Suspect]
     Active Substance: COAGULATION FACTOR IX RECOMBINANT HUMAN
     Dosage: 1511 UNK, UNK
     Route: 042
     Dates: start: 20150717
  25. IDELVION [Suspect]
     Active Substance: COAGULATION FACTOR IX RECOMBINANT HUMAN
     Dosage: 2979 UNK, UNK
     Route: 042
     Dates: start: 20151216
  26. IDELVION [Suspect]
     Active Substance: COAGULATION FACTOR IX RECOMBINANT HUMAN
     Dosage: 3100 UNK, UNK
     Route: 042
     Dates: start: 20160302
  27. IDELVION [Suspect]
     Active Substance: COAGULATION FACTOR IX RECOMBINANT HUMAN
     Dosage: 3300 UNK, UNK
     Route: 042
     Dates: start: 20160330
  28. IDELVION [Suspect]
     Active Substance: COAGULATION FACTOR IX RECOMBINANT HUMAN
     Dosage: 3300 IU, UNK
     Route: 042
     Dates: start: 20160624
  29. IDELVION [Suspect]
     Active Substance: COAGULATION FACTOR IX RECOMBINANT HUMAN
     Dosage: 1511 UNK, UNK
     Route: 042
     Dates: start: 20150619
  30. IDELVION [Suspect]
     Active Substance: COAGULATION FACTOR IX RECOMBINANT HUMAN
     Dosage: 2893 UNK, UNK
     Route: 042
     Dates: start: 20150731
  31. IDELVION [Suspect]
     Active Substance: COAGULATION FACTOR IX RECOMBINANT HUMAN
     Dosage: 3100 UNK, UNK
     Route: 042
     Dates: start: 20160316
  32. IDELVION [Suspect]
     Active Substance: COAGULATION FACTOR IX RECOMBINANT HUMAN
     Dosage: 3300 IU, UNK
     Route: 042
     Dates: start: 20160504
  33. IDELVION [Suspect]
     Active Substance: COAGULATION FACTOR IX RECOMBINANT HUMAN
     Dosage: 3300 IU, UNK
     Route: 042
     Dates: start: 20160525
  34. CETIRIZINE 5 MG/ML [Concomitant]
     Indication: HYPERSENSITIVITY
     Dosage: DOSE: 7.5 MG AND 7.5 ML REPORTED [SIC!], ONGOING: YES
     Route: 048
     Dates: start: 20150710
  35. FERROUS SULFATE. [Concomitant]
     Active Substance: FERROUS SULFATE
     Indication: SUPPLEMENTATION THERAPY
     Route: 065
     Dates: start: 20150731
  36. IDELVION [Suspect]
     Active Substance: COAGULATION FACTOR IX RECOMBINANT HUMAN
     Dosage: 1468 UNK, UNK
     Route: 042
     Dates: start: 20150501
  37. IDELVION [Suspect]
     Active Substance: COAGULATION FACTOR IX RECOMBINANT HUMAN
     Dosage: 1511 UNK, UNK
     Route: 042
     Dates: start: 20150605
  38. AMOXYCILLIN + CLAVULANATE [Concomitant]
     Indication: WOUND INFECTION
     Route: 048
     Dates: start: 20150626, end: 20150705
  39. IDELVION [Suspect]
     Active Substance: COAGULATION FACTOR IX RECOMBINANT HUMAN
     Dosage: 3100 UNK, UNK
     Route: 042
     Dates: start: 20160309

REACTIONS (1)
  - Anti factor IX antibody increased [Not Recovered/Not Resolved]

NARRATIVE: CASE EVENT DATE: 20150807
